FAERS Safety Report 7507559-6 (Version None)
Quarter: 2011Q2

REPORT INFORMATION
  Report Type: 
  Country: None (occurrence: None)
  Receive Date: 20110526
  Receipt Date: 20110520
  Transmission Date: 20111010
  Serious: Yes (Other)
  Sender: FDA-Public Use
  Company Number: US-RB-020655-11

PATIENT
  Age: 30 Year
  Sex: Female

DRUGS (2)
  1. SUBOXONE [Suspect]
     Indication: PRODUCT USED FOR UNKNOWN INDICATION
     Dosage: DOSING INFORMATION UNKNOWN-- SUBLINGUAL FILM
     Route: 065
  2. SUBOXONE [Suspect]
     Indication: PRODUCT USED FOR UNKNOWN INDICATION
     Dosage: DOSAGE INFORMATION UNKNOWN
     Route: 065

REACTIONS (8)
  - URTICARIA [None]
  - DRUG INEFFECTIVE [None]
  - BIPOLAR DISORDER [None]
  - PANIC REACTION [None]
  - MALAISE [None]
  - DRUG DEPENDENCE [None]
  - HEADACHE [None]
  - SUICIDAL IDEATION [None]
